FAERS Safety Report 4660166-5 (Version None)
Quarter: 2005Q2

REPORT INFORMATION
  Report Type: 
  Country: None (occurrence: None)
  Receive Date: 20050427
  Receipt Date: 20050120
  Transmission Date: 20051028
  Serious: No
  Sender: FDA-Public Use
  Company Number: 211877

PATIENT
  Age: 40 Year
  Sex: Male

DRUGS (7)
  1. XOLAIR [Suspect]
     Indication: ASTHMA
     Dosage: 150 MG, 1/MONTH
     Dates: start: 20041215
  2. RHINOCORT AQUA (BUDESONIDE) [Concomitant]
  3. ZYRTEC [Concomitant]
  4. ADVAIR (SALMETEROL XINAFOATE, FLUTICASONE PROPIONATE) [Concomitant]
  5. NEXIUM [Concomitant]
  6. WELLBUTRIN XL [Concomitant]
  7. SINGULAIR [Concomitant]

REACTIONS (1)
  - HEADACHE [None]
